FAERS Safety Report 9661310 (Version 1)
Quarter: 2013Q4

REPORT INFORMATION
  Report Type: Spontaneous
  Country: US (occurrence: None)
  Receive Date: 20131030
  Receipt Date: 20131030
  Transmission Date: 20140711
  Serious: No
  Sender: FDA-Public Use
  Company Number: 2013087429

PATIENT
  Sex: Female

DRUGS (1)
  1. FRAGMIN [Suspect]
     Indication: PROPHYLAXIS
     Dates: start: 20130308

REACTIONS (4)
  - Injection site reaction [None]
  - Injection site pruritus [None]
  - Injection site urticaria [None]
  - Maternal exposure during pregnancy [None]
